FAERS Safety Report 12265461 (Version 1)
Quarter: 2016Q2

REPORT INFORMATION
  Report Type: Spontaneous
  Country: NL (occurrence: NL)
  Receive Date: 20160413
  Receipt Date: 20160413
  Transmission Date: 20160815
  Serious: Yes (Hospitalization)
  Sender: FDA-Public Use
  Company Number: NL-TEVA-650868ACC

PATIENT
  Age: 75 Year
  Sex: Female

DRUGS (8)
  1. XELODA [Concomitant]
     Active Substance: CAPECITABINE
     Dosage: 3860 MILLIGRAM DAILY; TWICE DAILY 1930 MG
     Route: 048
  2. HYDROCORTISON/MICONAZOL CREME 10/20MG/G [Concomitant]
     Dosage: 1 DOSAGE FORMS DAILY; ONCE DAILY
     Route: 003
  3. OXALIPLATIN. [Suspect]
     Active Substance: OXALIPLATIN
     Indication: GASTRIC CANCER
     Dosage: 250 MG, INFUSION
     Route: 042
     Dates: start: 20160324
  4. LOSARTAN TABLET 50MG [Concomitant]
     Dosage: 50 MILLIGRAM DAILY; ONCE DAILY 50 MG
     Route: 048
  5. OMEPRAZOL CAPSULE MGA 20MG [Concomitant]
     Dosage: 20 MILLIGRAM DAILY; ONCE DAILY 20 MG; PROLONGED-RELEASE CAPSULE
     Route: 048
  6. METOCLOPRAMIDE ZETPIL 10MG [Concomitant]
     Dosage: 30 MILLIGRAM DAILY; 3 TIMES DAILY 10 MG
     Route: 054
  7. PARACETAMOL TABLET  500MG [Concomitant]
     Active Substance: ACETAMINOPHEN
     Dosage: 2000 MILLIGRAM DAILY; TWICE DAILY 1000 MG
     Route: 048
  8. ALLOPURINOL TABLET 100MG [Concomitant]
     Active Substance: ALLOPURINOL
     Dosage: 50 MILLIGRAM DAILY; ONCE DAILY 50 MG
     Route: 048

REACTIONS (5)
  - Hypoaesthesia [Recovered/Resolved]
  - Speech disorder [Recovered/Resolved]
  - Dyspnoea [Recovered/Resolved]
  - Swollen tongue [Recovered/Resolved]
  - Gait disturbance [Recovered/Resolved]

NARRATIVE: CASE EVENT DATE: 20160324
